FAERS Safety Report 11820949 (Version 1)
Quarter: 2015Q4

REPORT INFORMATION
  Report Type: Spontaneous
  Country: US (occurrence: None)
  Receive Date: 20151209
  Receipt Date: 20151209
  Transmission Date: 20160305
  Serious: Yes (Hospitalization, Disabling, Other)
  Sender: FDA-Public Use
  Company Number: None

PATIENT
  Age: 46 Year
  Sex: Male
  Weight: 74.84 kg

DRUGS (6)
  1. LEVOFLOXACIN 500 MG [Suspect]
     Active Substance: LEVOFLOXACIN
     Indication: SINUSITIS
     Dosage: 500 MG 1 X DAILY FOR 10 DAYS. ONCE DAILY TAKEN BY MOUTH
     Route: 048
     Dates: start: 20130628, end: 20130705
  2. TYLENOL [Concomitant]
     Active Substance: ACETAMINOPHEN
  3. BENADRYL [Concomitant]
     Active Substance: DIPHENHYDRAMINE HYDROCHLORIDE
  4. MULTIVITAMIN WITH ANTIOXIDANTS [Concomitant]
  5. FLONASE [Concomitant]
     Active Substance: FLUTICASONE PROPIONATE
  6. IBUPROFEN. [Concomitant]
     Active Substance: IBUPROFEN

REACTIONS (11)
  - Papilloma viral infection [None]
  - Dysstasia [None]
  - Mitochondrial cytopathy [None]
  - Muscle spasms [None]
  - Haematoma [None]
  - Musculoskeletal pain [None]
  - Mobility decreased [None]
  - Gastric ulcer [None]
  - Tendon rupture [None]
  - Muscle rupture [None]
  - Arthralgia [None]
